FAERS Safety Report 7092879-2 (Version None)
Quarter: 2010Q4

REPORT INFORMATION
  Report Type: 
  Country: None (occurrence: None)
  Receive Date: 20101110
  Receipt Date: 20101028
  Transmission Date: 20110411
  Serious: No
  Sender: FDA-Public Use
  Company Number: US-PFIZER INC-2010137901

PATIENT
  Sex: Male

DRUGS (1)
  1. CHANTIX [Suspect]
     Indication: SMOKING CESSATION THERAPY
     Dosage: UNK
     Dates: start: 20100101, end: 20101001

REACTIONS (11)
  - ANGER [None]
  - DISTURBANCE IN SEXUAL AROUSAL [None]
  - DIZZINESS [None]
  - DYSGEUSIA [None]
  - ERUCTATION [None]
  - FEELING COLD [None]
  - FEELING JITTERY [None]
  - HOT FLUSH [None]
  - HYPERHIDROSIS [None]
  - NAUSEA [None]
  - PILOERECTION [None]
